FAERS Safety Report 9018960 (Version 2)
Quarter: 2013Q1

REPORT INFORMATION
  Report Type: Spontaneous
  Country: IT (occurrence: IT)
  Receive Date: 20130118
  Receipt Date: 20130205
  Transmission Date: 20140127
  Serious: Yes (Hospitalization)
  Sender: FDA-Public Use
  Company Number: IT-SANOFI-AVENTIS-2013SA001799

PATIENT
  Age: 43 Year
  Sex: Female

DRUGS (2)
  1. STILNOX [Suspect]
     Indication: SELF-INJURIOUS IDEATION
     Route: 048
     Dates: start: 20121223, end: 20121223
  2. SERTRALINE HYDROCHLORIDE [Concomitant]
     Route: 048

REACTIONS (5)
  - Somnolence [Recovering/Resolving]
  - Incorrect dose administered [Unknown]
  - Hypotension [Recovering/Resolving]
  - Intentional self-injury [Recovering/Resolving]
  - Psychomotor retardation [Recovering/Resolving]
